FAERS Safety Report 16756278 (Version 3)
Quarter: 2019Q3

REPORT INFORMATION
  Report Type: Report from Study
  Country: BR (occurrence: BR)
  Receive Date: 20190829
  Receipt Date: 20190925
  Transmission Date: 20191005
  Serious: Yes (Other)
  Sender: FDA-Public Use
  Company Number: BR-INCYTE CORPORATION-2019IN008740

PATIENT

DRUGS (3)
  1. JAKAVI [Suspect]
     Active Substance: RUXOLITINIB
     Indication: PRIMARY MYELOFIBROSIS
     Dosage: 15 MG, BID
     Route: 048
     Dates: start: 20190515, end: 20190608
  2. JAKAVI [Suspect]
     Active Substance: RUXOLITINIB
     Dosage: 5 MG, BID
     Route: 048
  3. ERYTHROPOETIN [Concomitant]
     Active Substance: ERYTHROPOIETIN
     Indication: PRODUCT USED FOR UNKNOWN INDICATION
     Dosage: 40.000 OT (UI), QW
     Route: 065

REACTIONS (10)
  - Blast cells present [Not Recovered/Not Resolved]
  - Haematocrit decreased [Unknown]
  - Haematocrit increased [Unknown]
  - Red blood cell count increased [Unknown]
  - Blood creatinine increased [Unknown]
  - Renal failure [Not Recovered/Not Resolved]
  - Diarrhoea [Recovered/Resolved]
  - Haemoglobin decreased [Unknown]
  - Haemoglobin increased [Unknown]
  - Metamyelocyte count decreased [Unknown]

NARRATIVE: CASE EVENT DATE: 201905
